FAERS Safety Report 20676792 (Version 1)
Quarter: 2022Q2

REPORT INFORMATION
  Report Type: Spontaneous
  Country: JP (occurrence: JP)
  Receive Date: 20220406
  Receipt Date: 20220406
  Transmission Date: 20220721
  Serious: Yes (Hospitalization, Other)
  Sender: FDA-Public Use
  Company Number: JP-ORGANON-O2203JPN000671J

PATIENT
  Age: 90 Year
  Sex: Female

DRUGS (7)
  1. CARBIDOPA\LEVODOPA [Suspect]
     Active Substance: CARBIDOPA\LEVODOPA
     Indication: Parkinson^s disease
     Dosage: 1.5 AFTER BREAKFAST, 0.5 AFTER LUNCH, 1.5 AFTER DINNER (CONCENTRATION 100 (UNITS NOT REPORTED))
     Route: 048
  2. CARBIDOPA\LEVODOPA [Suspect]
     Active Substance: CARBIDOPA\LEVODOPA
     Dosage: 1.5 BEFORE BREAKFAST, 0.5 BEFORE LUNCH, 1.5 BEFORE DINNER (CONCENTRATION 100 (UNITS NOT REPORTED))
     Route: 048
     Dates: start: 2020
  3. CARBIDOPA\LEVODOPA [Concomitant]
     Active Substance: CARBIDOPA\LEVODOPA
     Indication: Parkinson^s disease
     Dosage: UNK
     Route: 016
  4. MAGNESIUM OXIDE [Concomitant]
     Active Substance: MAGNESIUM OXIDE
     Dosage: UNK
     Route: 048
  5. DENOSUMAB [Concomitant]
     Active Substance: DENOSUMAB
     Dosage: UNK
     Route: 048
  6. .ALPHA.-TOCOPHEROL ACETATE [Concomitant]
     Active Substance: .ALPHA.-TOCOPHEROL ACETATE
     Dosage: UNK
     Route: 048
  7. ENSURE [Concomitant]
     Active Substance: AMINO ACIDS\DEXTROSE\ELECTROLYTES NOS\SOYBEAN OIL\VITAMINS
     Dosage: UNK UNK, PRN
     Route: 048

REACTIONS (10)
  - Parkinson^s disease [Unknown]
  - Adverse event [Recovered/Resolved]
  - Intestinal obstruction [Unknown]
  - Hallucination [Unknown]
  - Autonomic nervous system imbalance [Unknown]
  - Therapeutic response shortened [Unknown]
  - Blood pressure decreased [Unknown]
  - Somnolence [Unknown]
  - Wrong technique in product usage process [Unknown]
  - Wrong technique in product usage process [Unknown]
